FAERS Safety Report 9783785 (Version 1)
Quarter: 2013Q4

REPORT INFORMATION
  Report Type: Spontaneous
  Country: US (occurrence: US)
  Receive Date: 20131226
  Receipt Date: 20131226
  Transmission Date: 20140711
  Serious: No
  Sender: FDA-Public Use
  Company Number: US-PFIZER INC-2013366470

PATIENT
  Age: 58 Year
  Sex: Female
  Weight: 68.03 kg

DRUGS (2)
  1. CELEBREX [Suspect]
     Indication: SCIATICA
     Dosage: 200 MG, WEEKLY
     Dates: start: 20131219
  2. LEVOXYL [Concomitant]
     Indication: THYROID DISORDER
     Dosage: 50 UG, 1X/DAY

REACTIONS (1)
  - Off label use [Unknown]
